FAERS Safety Report 6615752-X (Version None)
Quarter: 2010Q1

REPORT INFORMATION
  Report Type: 
  Country: None (occurrence: None)
  Receive Date: 20100305
  Receipt Date: 20100223
  Transmission Date: 20100710
  Serious: Yes (Hospitalization, Other)
  Sender: FDA-Public Use
  Company Number: US-AMGEN-QUU394910

PATIENT
  Sex: Female

DRUGS (1)
  1. ENBREL [Suspect]
     Indication: RHEUMATOID ARTHRITIS
     Route: 058
     Dates: start: 19991001

REACTIONS (6)
  - APPENDIX DISORDER [None]
  - CHOLECYSTECTOMY [None]
  - COLON CANCER STAGE I [None]
  - MUSCLE CONTRACTURE [None]
  - PAIN IN EXTREMITY [None]
  - WEIGHT DECREASED [None]
